FAERS Safety Report 18006909 (Version 1)
Quarter: 2020Q3

REPORT INFORMATION
  Report Type: Spontaneous
  Country: US (occurrence: US)
  Receive Date: 20200709
  Receipt Date: 20200709
  Transmission Date: 20201103
  Serious: No
  Sender: FDA-Public Use
  Company Number: None

PATIENT

DRUGS (1)
  1. VANCOMYCIN HCL VANCOMYCIN [Suspect]
     Active Substance: VANCOMYCIN HYDROCHLORIDE
     Dosage: ORAL 250 MG/5 ML
     Route: 048

REACTIONS (3)
  - Product preparation error [None]
  - Transcription medication error [None]
  - Incorrect dose administered [None]
